FAERS Safety Report 14948004 (Version 1)
Quarter: 2018Q2

REPORT INFORMATION
  Report Type: Report from Study
  Country: PL (occurrence: PL)
  Receive Date: 20180529
  Receipt Date: 20180529
  Transmission Date: 20180711
  Serious: Yes (Hospitalization)
  Sender: FDA-Public Use
  Company Number: PL-SA-2018SA141287

PATIENT
  Age: 22 Year
  Sex: Female
  Weight: 45 kg

DRUGS (5)
  1. CETAPHIL [SOFT SOAP] [Concomitant]
  2. DUPILUMAB [Suspect]
     Active Substance: DUPILUMAB
     Indication: DERMATITIS ATOPIC
     Dosage: 300 MG, 1X
     Route: 058
     Dates: start: 20160505, end: 20160505
  3. DUPILUMAB [Suspect]
     Active Substance: DUPILUMAB
     Dosage: 300 MG, QW
     Route: 058
     Dates: start: 201605
  4. PARACETAMOL [Concomitant]
     Active Substance: ACETAMINOPHEN
  5. TULIP [ATORVASTATIN CALCIUM] [Concomitant]

REACTIONS (1)
  - Ovarian germ cell teratoma benign [Recovered/Resolved]

NARRATIVE: CASE EVENT DATE: 20180423
